FAERS Safety Report 4940651-9 (Version None)
Quarter: 2006Q1

REPORT INFORMATION
  Report Type: 
  Country: None (occurrence: None)
  Receive Date: 20060127
  Receipt Date: 20050818
  Transmission Date: 20060701
  Serious: Yes (Other)
  Sender: FDA-Public Use
  Company Number: A03200502590

PATIENT
  Age: 17 Year
  Sex: Female

DRUGS (2)
  1. ARALEN [Suspect]
     Indication: MALARIA PROPHYLAXIS
     Dosage: 500 MG BID - ORAL
     Route: 048
     Dates: start: 20050601, end: 20050101
  2. IODINE [Concomitant]

REACTIONS (11)
  - AMNESIA [None]
  - CONFUSIONAL STATE [None]
  - DEPRESSION [None]
  - DIARRHOEA [None]
  - DISTURBANCE IN ATTENTION [None]
  - HALLUCINATION [None]
  - HEADACHE [None]
  - NIGHTMARE [None]
  - PHARYNGOLARYNGEAL PAIN [None]
  - PSYCHOTIC DISORDER [None]
  - VOMITING [None]
